FAERS Safety Report 4608319-6 (Version None)
Quarter: 2005Q2

REPORT INFORMATION
  Report Type: 
  Country: None (occurrence: None)
  Receive Date: 20050228
  Receipt Date: 20041208
  Transmission Date: 20051028
  Serious: Yes (Hospitalization)
  Sender: FDA-Public Use
  Company Number: FABR-10703

PATIENT
  Age: 52 Year
  Sex: Male

DRUGS (3)
  1. FABRAZYME [Suspect]
     Indication: FABRY'S DISEASE
     Dosage: 0.5 MG/KG Q2WKS IV
     Route: 042
     Dates: start: 20040101
  2. FABRAZYME [Suspect]
     Indication: FABRY'S DISEASE
     Dosage: 70 MG Q2WKS  IV
     Route: 042
     Dates: start: 20030523, end: 20040101
  3. ... [Suspect]

REACTIONS (6)
  - CHEST PAIN [None]
  - DYSPNOEA [None]
  - HYPOTENSION [None]
  - NAUSEA [None]
  - PARAESTHESIA [None]
  - PRURITUS GENERALISED [None]
